FAERS Safety Report 8276071-1 (Version None)
Quarter: 2012Q2

REPORT INFORMATION
  Report Type: 
  Country: None (occurrence: None)
  Receive Date: 20120406
  Receipt Date: 20120329
  Transmission Date: 20120825
  Serious: Yes (Hospitalization)
  Sender: FDA-Public Use
  Company Number: 2012SP017214

PATIENT
  Age: 30 Year
  Sex: Male

DRUGS (4)
  1. SAPHRIS [Suspect]
     Indication: BIPOLAR DISORDER
     Dosage: 10 MG; ONCE
     Dates: start: 20120301, end: 20120301
  2. METHADON HCL TAB [Concomitant]
  3. LUVOX [Concomitant]
  4. LITHIUM [Concomitant]

REACTIONS (2)
  - FEELING ABNORMAL [None]
  - BLOOD POTASSIUM DECREASED [None]
